FAERS Safety Report 4765391-0 (Version None)
Quarter: 2005Q3

REPORT INFORMATION
  Report Type: 
  Country: None (occurrence: None)
  Receive Date: 20050908
  Receipt Date: 20050908
  Transmission Date: 20060218
  Serious: Yes (Other)
  Sender: FDA-Public Use
  Company Number: None

PATIENT
  Sex: Male

DRUGS (1)
  1. DEPAKOTE ER [Suspect]
     Indication: CONVULSION
     Dosage: 500MG  QAM  PO;  750MG  QPM  PO
     Route: 048

REACTIONS (2)
  - CONVULSION [None]
  - DRUG DISPENSING ERROR [None]
